FAERS Safety Report 8709652 (Version 3)
Quarter: 2012Q4

REPORT INFORMATION
  Report Type: 
  Country: BR (occurrence: BR)
  Receive Date: 20120806
  Receipt Date: 20121011
  Transmission Date: 20130627
  Serious: Yes (Other)
  Sender: FDA-Public Use
  Company Number: BR-GLAXOSMITHKLINE-B0820606A

PATIENT
  Sex: Male
  Weight: 80 kg

DRUGS (3)
  1. RYTMONORM [Suspect]
     Indication: TACHYCARDIA
     Dosage: 300MG Twice per day
     Route: 048
     Dates: end: 201206
  2. BETAHISTINE [Concomitant]
     Indication: LABYRINTHITIS
     Dosage: 1TAB per day
     Route: 048
  3. LEVOTHYROXINE [Concomitant]
     Indication: HYPOTHYROIDISM
     Dosage: 88MCG Per day
     Route: 048

REACTIONS (9)
  - Prostate cancer [Recovered/Resolved]
  - Headache [Recovered/Resolved]
  - Malaise [Unknown]
  - Migraine [Recovered/Resolved]
  - Labyrinthitis [Unknown]
  - Hypothyroidism [Unknown]
  - Prostatic specific antigen increased [Unknown]
  - Scrotal pain [Unknown]
  - Heart rate decreased [Unknown]
